FAERS Safety Report 24447254 (Version 8)
Quarter: 2025Q4

REPORT INFORMATION
  Report Type: Spontaneous
  Country: US (occurrence: US)
  Receive Date: 20241016
  Receipt Date: 20251009
  Transmission Date: 20260118
  Serious: Yes (Hospitalization, Other)
  Sender: SANOFI AVENTIS
  Company Number: US-SA-2024SA294844

PATIENT
  Age: 60 Year
  Sex: Male
  Weight: 80 kg

DRUGS (13)
  1. REZUROCK [Suspect]
     Active Substance: BELUMOSUDIL
     Indication: Acute lymphocytic leukaemia
     Dosage: 200 MG, QD
     Route: 048
     Dates: start: 202409
  2. REZUROCK [Suspect]
     Active Substance: BELUMOSUDIL
     Dosage: 200 MG, BID
     Route: 048
  3. PREDNISONE [Concomitant]
     Active Substance: PREDNISONE
     Dosage: UNK
  4. TERAZOSIN [Concomitant]
     Active Substance: TERAZOSIN HYDROCHLORIDE
     Dosage: UNK
  5. PANTOPRAZOLE [Concomitant]
     Active Substance: PANTOPRAZOLE
     Dosage: UNK
  6. IMODIUM A-D [Concomitant]
     Active Substance: LOPERAMIDE HYDROCHLORIDE
     Dosage: UNK
  7. VALACYCLOVIR [Concomitant]
     Active Substance: VALACYCLOVIR HYDROCHLORIDE
     Dosage: UNK
  8. BACTRIM DS [Concomitant]
     Active Substance: SULFAMETHOXAZOLE\TRIMETHOPRIM
     Dosage: UNK
  9. CARAFATE [Concomitant]
     Active Substance: SUCRALFATE
     Dosage: UNK
  10. VITAMIN D NOS [Concomitant]
     Active Substance: CHOLECALCIFEROL\ERGOCALCIFEROL
     Dosage: UNK
  11. MICAFUNGIN [MICAFUNGIN SODIUM] [Concomitant]
     Dosage: UNK
  12. FLUTICASONE PROPIONATE HFA [Concomitant]
     Active Substance: FLUTICASONE PROPIONATE
     Dosage: UNK
  13. ROSUVASTATIN [Concomitant]
     Active Substance: ROSUVASTATIN
     Dosage: UNK

REACTIONS (15)
  - Ulcer haemorrhage [Recovered/Resolved]
  - Syncope [Recovered/Resolved]
  - Haematochezia [Recovered/Resolved]
  - Haematocrit decreased [Recovered/Resolved]
  - Constipation [Recovered/Resolved]
  - Dry eye [Recovered/Resolved]
  - Vision blurred [Recovered/Resolved]
  - Phlebitis [Not Recovered/Not Resolved]
  - Liver function test increased [Unknown]
  - Blood bilirubin increased [Unknown]
  - Frequent bowel movements [Unknown]
  - Peripheral swelling [Not Recovered/Not Resolved]
  - Urinary tract infection [Recovering/Resolving]
  - Product use in unapproved indication [Unknown]
  - Inappropriate schedule of product administration [Unknown]

NARRATIVE: CASE EVENT DATE: 20240901
